FAERS Safety Report 8839245 (Version 1)
Quarter: 2012Q4

REPORT INFORMATION
  Report Type: 
  Country: NL (occurrence: NL)
  Receive Date: 20121015
  Receipt Date: 20121015
  Transmission Date: 20130627
  Serious: Yes (Life-Threatening, Hospitalization)
  Sender: FDA-Public Use
  Company Number: NL-JNJFOC-20121003951

PATIENT
  Age: 59 Year
  Sex: Male

DRUGS (5)
  1. REMICADE [Suspect]
     Indication: ARTHRITIS
     Dosage: 3 DF
     Route: 042
     Dates: start: 20010903, end: 20011022
  2. METHOTREXATE [Concomitant]
     Route: 065
     Dates: start: 1993
  3. VIOXX [Concomitant]
     Route: 065
     Dates: start: 200005
  4. ACIDUM FOLICUM [Concomitant]
     Route: 065
     Dates: start: 1994
  5. PANTOPRAZOLE [Concomitant]
     Route: 065

REACTIONS (3)
  - Otitis media [Recovered/Resolved]
  - Coma [Recovered/Resolved]
  - Meningitis pneumococcal [Recovered/Resolved]
